FAERS Safety Report 8852097 (Version 1)
Quarter: 2012Q4

REPORT INFORMATION
  Report Type: Spontaneous
  Country: US (occurrence: None)
  Receive Date: 20121022
  Receipt Date: 20121022
  Transmission Date: 20130627
  Serious: Yes (Hospitalization, Other)
  Sender: FDA-Public Use
  Company Number: None

PATIENT
  Age: 60 Year
  Sex: Female
  Weight: 79.38 kg

DRUGS (6)
  1. KENALOG [Suspect]
     Indication: SPINAL STENOSIS NOS
     Dosage: 1 time Intratracheal
     Route: 039
     Dates: start: 20120929, end: 20120929
  2. OMNIPAQUE NECC [Suspect]
     Dosage: 1 time Intratracheal
     Route: 039
     Dates: start: 20120929, end: 20120929
  3. INSULIN SLIDING SCALE [Concomitant]
  4. INSULIN LONG ACTING [Concomitant]
  5. TRAMADOL [Concomitant]
  6. PROBIOTICS [Concomitant]

REACTIONS (6)
  - Headache [None]
  - Fatigue [None]
  - Chills [None]
  - Diarrhoea [None]
  - Abdominal discomfort [None]
  - Dehydration [None]
